FAERS Safety Report 24823214 (Version 1)
Quarter: 2025Q1

REPORT INFORMATION
  Report Type: Spontaneous
  Country: US (occurrence: US)
  Receive Date: 20250109
  Receipt Date: 20250109
  Transmission Date: 20250408
  Serious: Yes (Other)
  Sender: AMGEN
  Company Number: US-AMGEN-USASP2025000945

PATIENT
  Sex: Male

DRUGS (2)
  1. REPATHA [Suspect]
     Active Substance: EVOLOCUMAB
     Indication: Blood cholesterol abnormal
     Route: 065
  2. REPATHA [Suspect]
     Active Substance: EVOLOCUMAB
     Route: 065
     Dates: end: 202406

REACTIONS (5)
  - Erectile dysfunction [Unknown]
  - Myocardial infarction [Unknown]
  - Arthralgia [Unknown]
  - Dyspepsia [Unknown]
  - Influenza like illness [Unknown]

NARRATIVE: CASE EVENT DATE: 20210101
